FAERS Safety Report 12260104 (Version 1)
Quarter: 2016Q2

REPORT INFORMATION
  Report Type: Spontaneous
  Country: US (occurrence: US)
  Receive Date: 20160412
  Receipt Date: 20160412
  Transmission Date: 20160815
  Serious: No
  Sender: FDA-Public Use
  Company Number: US-SA-2015SA150076

PATIENT
  Age: 77 Year
  Sex: Female

DRUGS (1)
  1. ALLEGRA ALLERGY [Suspect]
     Active Substance: FEXOFENADINE HYDROCHLORIDE
     Indication: HYPERSENSITIVITY
     Dosage: USING ALLEGRA PRODUCTS FOR ABOUT 8-10 YEARS NOW?STOP DATEFEW MONTHS AGO?DOSAGE 24H TABLET
     Route: 065

REACTIONS (5)
  - Oropharyngeal pain [Unknown]
  - Throat irritation [Unknown]
  - Pharyngeal oedema [Unknown]
  - Abdominal discomfort [Unknown]
  - Drug ineffective [Unknown]
